FAERS Safety Report 6274849-7 (Version None)
Quarter: 2009Q3

REPORT INFORMATION
  Report Type: 
  Country: None (occurrence: None)
  Receive Date: 20090721
  Receipt Date: 20070725
  Transmission Date: 20100115
  Serious: Yes (Other)
  Sender: FDA-Public Use
  Company Number: US-ASTRAZENECA-2007UW02104

PATIENT
  Age: 398 Month
  Sex: Male

DRUGS (28)
  1. SEROQUEL [Suspect]
     Indication: POST-TRAUMATIC STRESS DISORDER
     Route: 048
     Dates: start: 20010101, end: 20060801
  2. SEROQUEL [Suspect]
     Indication: SCHIZOAFFECTIVE DISORDER
     Route: 048
     Dates: start: 20010101, end: 20060801
  3. SEROQUEL [Suspect]
     Indication: HALLUCINATION, AUDITORY
     Route: 048
     Dates: start: 20010101, end: 20060801
  4. SEROQUEL [Suspect]
     Dosage: 25-600 MG
     Route: 048
     Dates: start: 20010124
  5. SEROQUEL [Suspect]
     Dosage: 25-600 MG
     Route: 048
     Dates: start: 20010124
  6. SEROQUEL [Suspect]
     Dosage: 25-600 MG
     Route: 048
     Dates: start: 20010124
  7. DEPAKOTE [Concomitant]
     Indication: ANGER
     Dates: start: 20000401, end: 20061101
  8. DEPAKOTE [Concomitant]
     Indication: BIPOLAR DISORDER
     Dates: start: 20000401, end: 20061101
  9. DEPAKOTE [Concomitant]
     Route: 048
     Dates: start: 19961026
  10. DEPAKOTE [Concomitant]
     Route: 048
     Dates: start: 19961026
  11. VIAGRA [Concomitant]
     Route: 048
  12. ASPIRIN [Concomitant]
     Route: 048
     Dates: start: 20010130
  13. ATENOLOL [Concomitant]
     Indication: ATRIAL FIBRILLATION
     Dosage: 25-50 MG
     Route: 048
     Dates: start: 20001231
  14. ATENOLOL [Concomitant]
     Indication: HYPERTENSION
     Dosage: 25-50 MG
     Route: 048
     Dates: start: 20001231
  15. CELEXA [Concomitant]
     Indication: DEPRESSION
     Dates: start: 20010124
  16. CELEXA [Concomitant]
     Indication: ANXIETY
     Dates: start: 20010124
  17. AMARYL [Concomitant]
     Dosage: 4-8 MG
     Route: 048
     Dates: start: 20001231
  18. ACTOS [Concomitant]
     Dosage: 30-45 MG
     Route: 048
     Dates: start: 20010130
  19. ACCUPRIL [Concomitant]
     Indication: ATRIAL FIBRILLATION
     Route: 048
     Dates: start: 20001231
  20. ACCUPRIL [Concomitant]
     Indication: HYPERTENSION
     Route: 048
     Dates: start: 20001231
  21. DIOVAN [Concomitant]
     Dosage: 160-320 MG
     Dates: start: 20030813
  22. GLUCOPHAGE [Concomitant]
     Route: 048
     Dates: start: 20030813
  23. KLONOPIN [Concomitant]
     Route: 048
     Dates: start: 20070516
  24. WELLBUTRIN [Concomitant]
     Route: 048
     Dates: start: 20070516
  25. ZOCOR [Concomitant]
     Dates: start: 20070516
  26. FLEXERIL [Concomitant]
     Route: 048
     Dates: start: 20070516
  27. LIPITOR [Concomitant]
     Dates: start: 20030813
  28. TRAMADOL HCL [Concomitant]
     Route: 048
     Dates: start: 20070516

REACTIONS (30)
  - ATRIAL TACHYCARDIA [None]
  - BLOOD CHOLESTEROL INCREASED [None]
  - BLOOD TRIGLYCERIDES INCREASED [None]
  - BRONCHITIS [None]
  - CHEST PAIN [None]
  - CORONARY ARTERY DISEASE [None]
  - DIABETES MELLITUS [None]
  - DIABETES MELLITUS INADEQUATE CONTROL [None]
  - DIABETIC NEUROPATHY [None]
  - ERECTILE DYSFUNCTION [None]
  - GASTROOESOPHAGEAL REFLUX DISEASE [None]
  - HEADACHE [None]
  - HIATUS HERNIA [None]
  - HYPERTENSION [None]
  - HYPERTRIGLYCERIDAEMIA [None]
  - METABOLIC SYNDROME [None]
  - MUSCLE SPASMS [None]
  - NECK PAIN [None]
  - NEUROPATHY PERIPHERAL [None]
  - OBESITY [None]
  - OSTEOARTHRITIS [None]
  - OVERWEIGHT [None]
  - PAIN IN EXTREMITY [None]
  - PANIC ATTACK [None]
  - PATELLOFEMORAL PAIN SYNDROME [None]
  - SUICIDAL IDEATION [None]
  - TYPE 1 DIABETES MELLITUS [None]
  - TYPE 2 DIABETES MELLITUS [None]
  - VISION BLURRED [None]
  - WEIGHT INCREASED [None]
